FAERS Safety Report 9808309 (Version 2)
Quarter: 2014Q1

REPORT INFORMATION
  Report Type: Spontaneous
  Country: US (occurrence: US)
  Receive Date: 20140110
  Receipt Date: 20140110
  Transmission Date: 20141002
  Serious: Yes (Disabling)
  Sender: FDA-Public Use
  Company Number: US-009507513-1108USA03566

PATIENT
  Sex: Male

DRUGS (2)
  1. PROPECIA [Suspect]
     Indication: ANDROGENETIC ALOPECIA
     Dosage: UNK, QD
     Route: 048
     Dates: start: 200611, end: 201001
  2. PROSCAR [Suspect]
     Dosage: 5 MG, UNK
     Route: 048
     Dates: start: 2006

REACTIONS (12)
  - Male sexual dysfunction [Unknown]
  - Emotional distress [Unknown]
  - Anxiety [Unknown]
  - Blood testosterone decreased [Unknown]
  - Emotional poverty [Unknown]
  - Memory impairment [Unknown]
  - Testicular atrophy [Unknown]
  - Disturbance in attention [Unknown]
  - Insomnia [Unknown]
  - Depression [Unknown]
  - Libido decreased [Unknown]
  - Erectile dysfunction [Unknown]
